FAERS Safety Report 9327694 (Version 1)
Quarter: 2013Q2

REPORT INFORMATION
  Report Type: Spontaneous
  Country: US (occurrence: US)
  Receive Date: 20130604
  Receipt Date: 20130604
  Transmission Date: 20140414
  Serious: No
  Sender: FDA-Public Use
  Company Number: US-ASTRAZENECA-2013SE35678

PATIENT
  Age: 43 Year
  Sex: Female

DRUGS (2)
  1. PULMICORT FLEXHALER [Suspect]
     Indication: ASTHMA
     Dosage: 180MCG  2 PUFFS THREE TIMES A DAY
     Route: 055
  2. OTHER [Suspect]
     Route: 065

REACTIONS (3)
  - Asthma [Unknown]
  - Intentional drug misuse [Unknown]
  - Drug dose omission [Unknown]
